FAERS Safety Report 21837291 (Version 1)
Quarter: 2023Q1

REPORT INFORMATION
  Report Type: Spontaneous
  Country: US (occurrence: US)
  Receive Date: 20230109
  Receipt Date: 20230109
  Transmission Date: 20230418
  Serious: No
  Sender: FDA-Public Use
  Company Number: US-GSK-US2023AMR001542

PATIENT
  Age: 73 Year
  Sex: Female

DRUGS (1)
  1. ALBUTEROL SULFATE [Suspect]
     Active Substance: ALBUTEROL SULFATE
     Indication: Product used for unknown indication
     Dosage: UNK, 90 MCG, 18G/200 METERED

REACTIONS (9)
  - Rhinitis allergic [Unknown]
  - Condition aggravated [Unknown]
  - Dry throat [Unknown]
  - Productive cough [Unknown]
  - Wrong technique in device usage process [Unknown]
  - Product communication issue [Unknown]
  - Wrong technique in product usage process [Unknown]
  - Expired product administered [Unknown]
  - Incorrect dose administered [Unknown]
